FAERS Safety Report 6734098-2 (Version None)
Quarter: 2010Q2

REPORT INFORMATION
  Report Type: 
  Country: None (occurrence: None)
  Receive Date: 20100520
  Receipt Date: 20100517
  Transmission Date: 20101027
  Serious: Yes (Hospitalization, Other)
  Sender: FDA-Public Use
  Company Number: US-MERCK-1005USA02141

PATIENT
  Age: 67 Year
  Sex: Female

DRUGS (6)
  1. DECADRON [Suspect]
     Indication: MULTIPLE MYELOMA
     Route: 048
     Dates: start: 20090218, end: 20090424
  2. ARANESP [Concomitant]
     Route: 065
     Dates: start: 20091106
  3. REVLIMID [Concomitant]
     Indication: MULTIPLE MYELOMA
     Dosage: DAILY FOR 21 DAYS EVERY 28 DAYS
     Route: 048
     Dates: start: 20090218, end: 20090424
  4. REVLIMID [Concomitant]
     Dosage: DAILY FOR 21 DAYS EVERY 28 DAYS
     Route: 048
     Dates: start: 20091106
  5. PROTONIX [Concomitant]
     Route: 065
     Dates: start: 20090218
  6. PROTONIX [Concomitant]
     Route: 065
     Dates: start: 20091106

REACTIONS (4)
  - CHOLELITHIASIS [None]
  - PANCREATITIS [None]
  - PRURITUS [None]
  - RASH [None]
